FAERS Safety Report 4819213-X (Version None)
Quarter: 2005Q4

REPORT INFORMATION
  Report Type: 
  Country: None (occurrence: None)
  Receive Date: 20051103
  Receipt Date: 20051024
  Transmission Date: 20060501
  Serious: Yes (Hospitalization)
  Sender: FDA-Public Use
  Company Number: FR-GLAXOSMITHKLINE-B0398535A

PATIENT
  Age: 36 Year
  Sex: Female

DRUGS (3)
  1. COMBIVIR [Suspect]
     Indication: HIV INFECTION
     Route: 048
     Dates: start: 20050718, end: 20050801
  2. NORVIR [Suspect]
     Indication: HIV INFECTION
     Route: 048
     Dates: start: 20050718, end: 20050801
  3. REYATAZ [Suspect]
     Indication: HIV INFECTION
     Route: 048
     Dates: start: 20050718, end: 20050801

REACTIONS (7)
  - CHOLESTASIS [None]
  - DRUG HYPERSENSITIVITY [None]
  - HYPERBILIRUBINAEMIA [None]
  - JAUNDICE [None]
  - OEDEMA [None]
  - RASH [None]
  - TRANSAMINASES INCREASED [None]
